FAERS Safety Report 5102290-9 (Version None)
Quarter: 2006Q3

REPORT INFORMATION
  Report Type: 
  Country: None (occurrence: None)
  Receive Date: 20060907
  Receipt Date: 20060825
  Transmission Date: 20061208
  Serious: Yes (Other)
  Sender: FDA-Public Use
  Company Number: 2005064290

PATIENT
  Age: 62 Year
  Sex: Female
  Weight: 64.4108 kg

DRUGS (2)
  1. BEXTRA [Suspect]
     Indication: INJURY
  2. BEXTRA [Suspect]
     Indication: PAIN

REACTIONS (2)
  - CEREBRAL INFARCTION [None]
  - MYOCARDIAL INFARCTION [None]
